FAERS Safety Report 4426791-1 (Version None)
Quarter: 2004Q3

REPORT INFORMATION
  Report Type: 
  Country: None (occurrence: None)
  Receive Date: 20040816
  Receipt Date: 20040810
  Transmission Date: 20050211
  Serious: Yes (Hospitalization)
  Sender: FDA-Public Use
  Company Number: IT-BRISTOL-MYERS SQUIBB COMPANY-12667713

PATIENT
  Sex: Male

DRUGS (1)
  1. EFAVIRENZ [Suspect]

REACTIONS (3)
  - EXANTHEM [None]
  - INTERSTITIAL LUNG DISEASE [None]
  - PYREXIA [None]
